FAERS Safety Report 7219664-2 (Version None)
Quarter: 2011Q1

REPORT INFORMATION
  Report Type: 
  Country: None (occurrence: None)
  Receive Date: 20110111
  Receipt Date: 20101223
  Transmission Date: 20110831
  Serious: Yes (Hospitalization)
  Sender: FDA-Public Use
  Company Number: ES-BRISTOL-MYERS SQUIBB COMPANY-15459100

PATIENT
  Age: 75 Year
  Sex: Female

DRUGS (2)
  1. NOVORAPID [Concomitant]
     Indication: TYPE 2 DIABETES MELLITUS
     Dosage: 1DF=NOVORAPID FLEXPEN 100 U/ML;SOL INYECTABLE EN UNA PLUMA PRECARGED
     Route: 058
     Dates: start: 20070101, end: 20071111
  2. METFORMIN HCL [Suspect]
     Indication: TYPE 2 DIABETES MELLITUS
     Dosage: COMPRIMIDOS RECUBIERTOS CON PENICULA 30 COMPRIMIDOS
     Route: 048
     Dates: start: 20070101, end: 20071111

REACTIONS (1)
  - METABOLIC ACIDOSIS [None]
